FAERS Safety Report 4339328-2 (Version None)
Quarter: 2004Q2

REPORT INFORMATION
  Report Type: 
  Country: None (occurrence: None)
  Receive Date: 20040415
  Receipt Date: 20040112
  Transmission Date: 20050107
  Serious: Yes (Hospitalization, Other)
  Sender: FDA-Public Use
  Company Number: 200410265US

PATIENT
  Sex: Female
  Weight: 52.7 kg

DRUGS (7)
  1. LOVENOX [Suspect]
     Indication: HEART VALVE REPLACEMENT
     Route: 051
     Dates: start: 20020401
  2. COUMADIN [Concomitant]
     Dosage: DOSE: UNK
  3. XANAX [Concomitant]
     Indication: ANXIETY
  4. PREDNISONE [Concomitant]
     Indication: INFLAMMATION
  5. BENADRYL [Concomitant]
  6. PRILOSEC [Concomitant]
  7. CARDIZEM [Concomitant]
     Dosage: DOSE: 1 CAPSULE

REACTIONS (4)
  - CEREBROVASCULAR ACCIDENT [None]
  - HEMIPLEGIA [None]
  - STAPHYLOCOCCAL SCALDED SKIN SYNDROME [None]
  - WOUND SECRETION [None]
